FAERS Safety Report 5972368-6 (Version None)
Quarter: 2008Q4

REPORT INFORMATION
  Report Type: 
  Country: None (occurrence: None)
  Receive Date: 20081201
  Receipt Date: 20080107
  Transmission Date: 20090506
  Serious: No
  Sender: FDA-Public Use
  Company Number: US-AMGEN-KDL259595

PATIENT
  Sex: Male

DRUGS (2)
  1. ENBREL [Suspect]
     Indication: PSORIATIC ARTHROPATHY
     Route: 058
     Dates: start: 20071201
  2. ENBREL [Suspect]
     Indication: PSORIASIS

REACTIONS (6)
  - BACK PAIN [None]
  - DRY MOUTH [None]
  - DYSPNOEA [None]
  - HEART RATE IRREGULAR [None]
  - INTERVERTEBRAL DISC PROTRUSION [None]
  - NASAL DRYNESS [None]
